FAERS Safety Report 26066989 (Version 1)
Quarter: 2025Q4

REPORT INFORMATION
  Report Type: Spontaneous
  Country: CN (occurrence: CN)
  Receive Date: 20251119
  Receipt Date: 20251119
  Transmission Date: 20260117
  Serious: Yes (Other)
  Sender: BEIGENE
  Company Number: CN-BEIGENE-BGN-2025-019587

PATIENT
  Age: 60 Year
  Sex: Male

DRUGS (8)
  1. TISLELIZUMAB [Suspect]
     Active Substance: TISLELIZUMAB
     Indication: Lung adenocarcinoma stage IV
     Dosage: UNK
  2. TISLELIZUMAB [Suspect]
     Active Substance: TISLELIZUMAB
     Indication: Metastasis
     Dosage: UNK
  3. FIRMONERTINIB MESYLATE [Concomitant]
     Active Substance: FIRMONERTINIB MESYLATE
     Indication: Lung adenocarcinoma stage IV
  4. FIRMONERTINIB MESYLATE [Concomitant]
     Active Substance: FIRMONERTINIB MESYLATE
     Indication: Metastasis
  5. PEMETREXED [Concomitant]
     Active Substance: PEMETREXED
     Indication: Lung adenocarcinoma stage IV
     Dosage: 800 MILLIGRAM
  6. PEMETREXED [Concomitant]
     Active Substance: PEMETREXED
     Indication: Metastasis
  7. LOBAPLATIN [Concomitant]
     Active Substance: LOBAPLATIN
     Indication: Lung adenocarcinoma stage IV
     Dosage: 60 MILLIGRAM
  8. LOBAPLATIN [Concomitant]
     Active Substance: LOBAPLATIN
     Indication: Metastasis

REACTIONS (4)
  - Hepatic failure [Recovered/Resolved]
  - Blood creatinine increased [Recovered/Resolved]
  - Diarrhoea [Recovered/Resolved]
  - Pruritus [Recovered/Resolved]
